FAERS Safety Report 16589286 (Version 2)
Quarter: 2019Q3

REPORT INFORMATION
  Report Type: Spontaneous
  Country: US (occurrence: US)
  Receive Date: 20190718
  Receipt Date: 20190918
  Transmission Date: 20191004
  Serious: Yes (Death, Hospitalization, Other)
  Sender: FDA-Public Use
  Company Number: US-ASTRAZENECA-2019SF00631

PATIENT
  Age: 21590 Day
  Sex: Male
  Weight: 84.4 kg

DRUGS (59)
  1. OMEPRAZOLE. [Suspect]
     Active Substance: OMEPRAZOLE
     Indication: GASTROOESOPHAGEAL REFLUX DISEASE
     Dosage: OMEPRAZOLE (GENERIC)
     Route: 065
     Dates: start: 2003
  2. HYDRALAZINE [Concomitant]
     Active Substance: HYDRALAZINE HYDROCHLORIDE
  3. HELIDAC [Concomitant]
     Active Substance: BISMUTH SUBSALICYLATE\METRONIDAZOLE\TETRACYCLINE HYDROCHLORIDE
  4. ALPRAZOLAM. [Concomitant]
     Active Substance: ALPRAZOLAM
  5. ASPIRIN. [Concomitant]
     Active Substance: ASPIRIN
  6. INSULIN [Concomitant]
     Active Substance: INSULIN NOS
  7. VIAGRA [Concomitant]
     Active Substance: SILDENAFIL CITRATE
  8. GLIMEPIRIDE. [Concomitant]
     Active Substance: GLIMEPIRIDE
  9. RANITIDINE. [Concomitant]
     Active Substance: RANITIDINE
  10. QUININE SULFATE. [Concomitant]
     Active Substance: QUININE SULFATE
  11. METRONIDAZOLE. [Concomitant]
     Active Substance: METRONIDAZOLE
  12. TETRACYCLINE [Concomitant]
     Active Substance: TETRACYCLINE
  13. LANTUS [Concomitant]
     Active Substance: INSULIN GLARGINE
  14. OXYCODONE [Concomitant]
     Active Substance: OXYCODONE
  15. CETRIZINE [Concomitant]
     Active Substance: CETIRIZINE HYDROCHLORIDE
  16. ULTRAM [Concomitant]
     Active Substance: TRAMADOL HYDROCHLORIDE
  17. DEXILANT [Suspect]
     Active Substance: DEXLANSOPRAZOLE
     Indication: GASTROOESOPHAGEAL REFLUX DISEASE
     Route: 065
     Dates: start: 2012, end: 2017
  18. PREVACID [Suspect]
     Active Substance: LANSOPRAZOLE
     Indication: GASTROOESOPHAGEAL REFLUX DISEASE
     Route: 065
     Dates: start: 2007, end: 2009
  19. WELLBUTRIN [Concomitant]
     Active Substance: BUPROPION HYDROCHLORIDE
  20. JANUVIA [Concomitant]
     Active Substance: SITAGLIPTIN PHOSPHATE
  21. REZULIN [Concomitant]
     Active Substance: TROGLITAZONE
  22. CYCLOBENZAPRINE. [Concomitant]
     Active Substance: CYCLOBENZAPRINE
  23. VITAMIN D [Concomitant]
     Active Substance: VITAMIN D NOS
  24. ACCUPRIL [Concomitant]
     Active Substance: QUINAPRIL HYDROCHLORIDE
  25. CARVEDILOL. [Concomitant]
     Active Substance: CARVEDILOL
  26. OMEPRAZOLE. [Suspect]
     Active Substance: OMEPRAZOLE
     Indication: GASTROOESOPHAGEAL REFLUX DISEASE
     Dosage: OMEPRAZOLE (GENERIC)
     Route: 065
     Dates: start: 20030623
  27. DEXILANT [Suspect]
     Active Substance: DEXLANSOPRAZOLE
     Indication: GASTROOESOPHAGEAL REFLUX DISEASE
     Route: 065
     Dates: start: 20120203
  28. ACIPHEX [Suspect]
     Active Substance: RABEPRAZOLE SODIUM
     Indication: GASTROOESOPHAGEAL REFLUX DISEASE
     Route: 065
     Dates: start: 2001
  29. KAPIDEX [Suspect]
     Active Substance: DEXLANSOPRAZOLE
     Indication: GASTROOESOPHAGEAL REFLUX DISEASE
     Route: 065
     Dates: start: 2009, end: 2010
  30. TRAMADOL. [Concomitant]
     Active Substance: TRAMADOL
  31. ACTOS [Concomitant]
     Active Substance: PIOGLITAZONE HYDROCHLORIDE
  32. COMBIVENT [Concomitant]
     Active Substance: ALBUTEROL SULFATE\IPRATROPIUM BROMIDE
  33. FLEXPEN [Concomitant]
     Active Substance: UNSPECIFIED INGREDIENT
  34. SYMBICORT [Concomitant]
     Active Substance: BUDESONIDE\FORMOTEROL FUMARATE DIHYDRATE
  35. ALBUTEROL SULFATE. [Concomitant]
     Active Substance: ALBUTEROL SULFATE
  36. SITAGLIPTIN PHOSPHATE [Concomitant]
     Active Substance: SITAGLIPTIN PHOSPHATE
  37. DEXILANT [Suspect]
     Active Substance: DEXLANSOPRAZOLE
     Indication: GASTROOESOPHAGEAL REFLUX DISEASE
     Route: 065
     Dates: start: 20131107
  38. PREVACID [Suspect]
     Active Substance: LANSOPRAZOLE
     Indication: GASTROOESOPHAGEAL REFLUX DISEASE
     Route: 065
     Dates: start: 20080930
  39. CIPROFLOXACIN. [Concomitant]
     Active Substance: CIPROFLOXACIN
  40. DOXYCYCLINE. [Concomitant]
     Active Substance: DOXYCYCLINE
  41. TOBRADEX [Concomitant]
     Active Substance: DEXAMETHASONE\TOBRAMYCIN
  42. CHANTIX [Concomitant]
     Active Substance: VARENICLINE TARTRATE
  43. METOPROLOL. [Concomitant]
     Active Substance: METOPROLOL
  44. ACIPHEX [Suspect]
     Active Substance: RABEPRAZOLE SODIUM
     Indication: GASTROOESOPHAGEAL REFLUX DISEASE
     Route: 065
     Dates: start: 2003, end: 2009
  45. LOTENSIN [Concomitant]
     Active Substance: BENAZEPRIL HYDROCHLORIDE
  46. SMZ/TMP [Concomitant]
     Active Substance: SULFAMETHOXAZOLE\TRIMETHOPRIM
  47. NEURONTIN [Concomitant]
     Active Substance: GABAPENTIN
  48. CODEINE [Concomitant]
     Active Substance: CODEINE
  49. DEXILANT [Suspect]
     Active Substance: DEXLANSOPRAZOLE
     Indication: GASTROOESOPHAGEAL REFLUX DISEASE
     Route: 065
     Dates: start: 2012, end: 2017
  50. METFORMIN [Concomitant]
     Active Substance: METFORMIN HYDROCHLORIDE
  51. GUAIFENEX [Concomitant]
     Active Substance: GUAIFENESIN\PHENYLEPHRINE\PHENYLPROPANOLAMINE
  52. HYDROCHLOROTHIAZIDE. [Concomitant]
     Active Substance: HYDROCHLOROTHIAZIDE
  53. CITALOPRAM [Concomitant]
     Active Substance: CITALOPRAM HYDROBROMIDE
  54. BENEFIBER [Concomitant]
     Active Substance: STARCH, WHEAT
  55. DEXILANT [Suspect]
     Active Substance: DEXLANSOPRAZOLE
     Indication: GASTROOESOPHAGEAL REFLUX DISEASE
     Route: 065
     Dates: start: 20130513
  56. AXID [Concomitant]
     Active Substance: NIZATIDINE
  57. NASONEX [Concomitant]
     Active Substance: MOMETASONE FUROATE
  58. CRESTOR [Concomitant]
     Active Substance: ROSUVASTATIN CALCIUM
  59. ACLIDINIUM [Concomitant]
     Active Substance: ACLIDINIUM BROMIDE

REACTIONS (4)
  - Anxiety [Unknown]
  - Chronic kidney disease [Not Recovered/Not Resolved]
  - Renal failure [Unknown]
  - Depression [Unknown]

NARRATIVE: CASE EVENT DATE: 20151001
